FAERS Safety Report 8819018 (Version 1)
Quarter: 2012Q4

REPORT INFORMATION
  Report Type: Spontaneous
  Country: US (occurrence: None)
  Receive Date: 20121004
  Receipt Date: 20121004
  Transmission Date: 20130627
  Serious: Yes (Life-Threatening, Hospitalization)
  Sender: FDA-Public Use
  Company Number: None

PATIENT
  Age: 66 Year
  Sex: Male
  Weight: 102 kg

DRUGS (1)
  1. RITUXIMAB [Suspect]
     Indication: CHRONIC LYMPHOCYTIC LEUKEMIA
     Dates: start: 20070131, end: 20120919

REACTIONS (6)
  - Throat tightness [None]
  - Dyspnoea [None]
  - Blood pressure systolic increased [None]
  - Infusion related reaction [None]
  - Chronic lymphocytic leukaemia recurrent [None]
  - Anaphylactic reaction [None]
